FAERS Safety Report 9215568 (Version 1)
Quarter: 2013Q2

REPORT INFORMATION
  Report Type: Spontaneous
  Country: US (occurrence: US)
  Receive Date: 20130407
  Receipt Date: 20130407
  Transmission Date: 20140414
  Serious: Yes (Hospitalization, Other)
  Sender: FDA-Public Use
  Company Number: US-ALEXION PHARMACEUTICALS INC.-A201300565

PATIENT
  Age: 29 Year
  Sex: Male
  Weight: 105 kg

DRUGS (13)
  1. SOLIRIS 300MG [Suspect]
     Indication: HAEMOLYTIC URAEMIC SYNDROME
     Dosage: 900 MG, QW X 4 WEEKS
     Route: 042
     Dates: start: 20130315
  2. ADDERALL [Concomitant]
  3. NORVASC [Concomitant]
  4. OS-CAL [Concomitant]
  5. LORCET [Concomitant]
  6. MULTIVITAMIN [Concomitant]
  7. ULTRAM [Concomitant]
  8. NEXIUM [Concomitant]
     Indication: VOMITING
     Dosage: PRN
     Route: 042
     Dates: start: 201303
  9. ZOFRAN [Concomitant]
     Indication: VOMITING
     Dosage: PRN
     Route: 042
     Dates: start: 201303
  10. HYDRALAZINE [Concomitant]
     Indication: MALIGNANT HYPERTENSION
     Dosage: PRN
     Dates: start: 201303
  11. PREDNISONE [Concomitant]
     Indication: ANAEMIA
     Dosage: UNK
     Route: 048
     Dates: start: 201303
  12. MORPHINE [Concomitant]
     Indication: BACK PAIN
     Dosage: PRN
     Dates: start: 201303
  13. AMOXIL [Concomitant]
     Indication: HAEMOLYTIC URAEMIC SYNDROME
     Dosage: 500 MG, BID X 2 WKS
     Dates: start: 201303

REACTIONS (4)
  - Weight decreased [Unknown]
  - Oedema peripheral [Recovering/Resolving]
  - Dyspnoea [Unknown]
  - Chest discomfort [Unknown]
